FAERS Safety Report 22614696 (Version 1)
Quarter: 2023Q2

REPORT INFORMATION
  Report Type: Spontaneous
  Country: DE (occurrence: DE)
  Receive Date: 20230619
  Receipt Date: 20230619
  Transmission Date: 20230722
  Serious: Yes (Other)
  Sender: FDA-Public Use
  Company Number: DE-SUN PHARMACEUTICAL INDUSTRIES LTD-2023RR-394349

PATIENT
  Age: 65 Year
  Sex: Female

DRUGS (10)
  1. DULOXETINE [Suspect]
     Active Substance: DULOXETINE
     Indication: Antidepressant therapy
     Dosage: UNK
     Route: 065
  2. QUETIAPINE [Suspect]
     Active Substance: QUETIAPINE
     Indication: Antidepressant therapy
     Dosage: UNK
     Route: 065
  3. AMISULPRIDE [Suspect]
     Active Substance: AMISULPRIDE
     Indication: Antidepressant therapy
     Dosage: UNK
     Route: 065
  4. SERTRALINE [Suspect]
     Active Substance: SERTRALINE HYDROCHLORIDE
     Indication: Antidepressant therapy
     Dosage: UNK
     Route: 065
  5. MIRTAZAPINE [Suspect]
     Active Substance: MIRTAZAPINE
     Indication: Antidepressant therapy
     Dosage: UNK
     Route: 065
  6. OLANZAPINE [Suspect]
     Active Substance: OLANZAPINE
     Indication: Antidepressant therapy
  7. LORAZEPAM [Suspect]
     Active Substance: LORAZEPAM
     Indication: Antidepressant therapy
     Dosage: UNK
     Route: 065
  8. LITHIUM [Suspect]
     Active Substance: LITHIUM
     Indication: Antidepressant therapy
     Dosage: UNK
     Route: 065
  9. TRAZODONE [Suspect]
     Active Substance: TRAZODONE HYDROCHLORIDE
     Indication: Antidepressant therapy
     Dosage: UNK
     Route: 065
  10. MOCLOBEMIDE [Suspect]
     Active Substance: MOCLOBEMIDE
     Indication: Antidepressant therapy
     Dosage: UNK
     Route: 065

REACTIONS (5)
  - Drug ineffective [Unknown]
  - Restlessness [Unknown]
  - Akathisia [Unknown]
  - Somnolence [Unknown]
  - Therapeutic product effect incomplete [Unknown]
